FAERS Safety Report 24757905 (Version 2)
Quarter: 2025Q2

REPORT INFORMATION
  Report Type: Spontaneous
  Country: GB (occurrence: GB)
  Receive Date: 20241220
  Receipt Date: 20250520
  Transmission Date: 20250717
  Serious: Yes (Hospitalization, Other)
  Sender: SANOFI AVENTIS
  Company Number: GB-MHRA-MIDB-0035d326-9be8-4749-b587-7db5022962d1

PATIENT
  Age: 84 Year
  Sex: Male

DRUGS (20)
  1. LERCANIDIPINE HYDROCHLORIDE [Suspect]
     Active Substance: LERCANIDIPINE HYDROCHLORIDE
     Dosage: 10 MG, QD
  2. GLIMEPIRIDE [Suspect]
     Active Substance: GLIMEPIRIDE
     Dosage: 2 MG, QD, EVERY MORNING
  3. IRBESARTAN [Suspect]
     Active Substance: IRBESARTAN
     Dosage: 75 MG, QD EVERY MORNING
  4. FUROSEMIDE [Suspect]
     Active Substance: FUROSEMIDE
     Dosage: 40 MG, QD EVERY MORNING
  5. METFORMIN HYDROCHLORIDE [Suspect]
     Active Substance: METFORMIN HYDROCHLORIDE
     Dosage: 1 G, BID (TWICE A DAY)
  6. LANSOPRAZOLE [Concomitant]
     Active Substance: LANSOPRAZOLE
     Dosage: 30 MG, BID (TWICE A DAY)
  7. CALCIUM\CHOLECALCIFEROL [Concomitant]
     Active Substance: CALCIUM\CHOLECALCIFEROL
     Dosage: 1 DF, BID (TWICE A DAY)
  8. ALENDRONIC ACID [Concomitant]
     Active Substance: ALENDRONIC ACID
     Dosage: 70 MG, QW (ONCE A WEEK ON THURSDAYS)
  9. ATORVASTATIN [Concomitant]
     Active Substance: ATORVASTATIN
     Dosage: 80 MG, QD EVERY NIGHT (ON)
  10. EDOXABAN [Concomitant]
     Active Substance: EDOXABAN
     Dosage: 60 MG, QD EVERY MORNING
  11. FERROUS FUMARATE [Concomitant]
     Active Substance: FERROUS FUMARATE
     Dosage: 210 MG, QD ONE TO BE TAKEN DAILY
  12. GLYCERIN [Concomitant]
     Active Substance: GLYCERIN
  13. SERTRALINE [Concomitant]
     Active Substance: SERTRALINE HYDROCHLORIDE
     Dosage: 50 MG, QD (ONE TO BE TAKEN EACH DAY 28 TABLET - PT STATES NEVER HEARD OF IT, NOT TAKING - CONFIRMED
  14. GABAPENTIN [Concomitant]
     Active Substance: GABAPENTIN
     Dosage: 600 MG, TID (THREE TIMES A DAY)
  15. ORANGE [Concomitant]
     Active Substance: ORANGE
     Indication: Constipation
     Dosage: 1 DF, BID (TAKE ONE TWICE A DAY FOR CONSTIPATION - DOESN^T NEED CURRENTLY BUT WAS USING PRE-ADMISSIO
     Route: 048
  16. OXYCODONE [Concomitant]
     Active Substance: OXYCODONE
     Indication: Pain
     Dosage: 2.5 ML, Q6H (5 MG / 5 ML ORAL SOLUTION SUGAR FREE 2.5 ML)
     Route: 048
  17. POTASSIUM BICARBONATE\SODIUM ALGINATE [Concomitant]
     Active Substance: POTASSIUM BICARBONATE\SODIUM ALGINATE
     Route: 048
  18. POTASSIUM BICARBONATE\SODIUM ALGINATE [Concomitant]
     Active Substance: POTASSIUM BICARBONATE\SODIUM ALGINATE
  19. COCODAMOL [Concomitant]
     Active Substance: ACETAMINOPHEN\CODEINE PHOSPHATE
  20. ACETAMINOPHEN [Concomitant]
     Active Substance: ACETAMINOPHEN

REACTIONS (1)
  - Acute kidney injury [Recovered/Resolved]
